FAERS Safety Report 14909263 (Version 4)
Quarter: 2018Q2

REPORT INFORMATION
  Report Type: Spontaneous
  Country: CN (occurrence: CN)
  Receive Date: 20180517
  Receipt Date: 20180521
  Transmission Date: 20180711
  Serious: Yes (Other)
  Sender: FDA-Public Use
  Company Number: PHHY2017CN203332

PATIENT
  Age: 60 Year
  Sex: Female

DRUGS (7)
  1. BSS [Suspect]
     Active Substance: CALCIUM CHLORIDE\MAGNESIUM CHLORIDE\POTASSIUM CHLORIDE\SODIUM ACETATE\SODIUM CHLORIDE\SODIUM CITRATE
     Dosage: UNK
     Route: 031
     Dates: start: 20171102, end: 20171102
  2. PRANOPROFEN [Concomitant]
     Active Substance: PRANOPROFEN
     Indication: POSTOPERATIVE CARE
     Route: 065
  3. ADRENALINE [Concomitant]
     Active Substance: EPINEPHRINE
     Indication: INTRAOPERATIVE CARE
     Route: 065
  4. TOBRADEX [Suspect]
     Active Substance: DEXAMETHASONE\TOBRAMYCIN
     Indication: POSTOPERATIVE CARE
     Route: 047
  5. BSS [Suspect]
     Active Substance: CALCIUM CHLORIDE\MAGNESIUM CHLORIDE\POTASSIUM CHLORIDE\SODIUM ACETATE\SODIUM CHLORIDE\SODIUM CITRATE
     Indication: EYE IRRIGATION
     Dosage: UNK
     Route: 031
     Dates: start: 20171031, end: 20171031
  6. LEVOFLOXACIN. [Concomitant]
     Active Substance: LEVOFLOXACIN
     Indication: PREOPERATIVE CARE
     Route: 065
  7. POVIDONE-IODINE. [Concomitant]
     Active Substance: POVIDONE-IODINE
     Indication: PREOPERATIVE CARE

REACTIONS (11)
  - C-reactive protein increased [Recovered/Resolved]
  - Lens disorder [Recovered/Resolved]
  - Eye inflammation [Recovered/Resolved]
  - Hypopyon [Recovered/Resolved]
  - Vitreous opacities [Recovered/Resolved]
  - Eye pain [Recovered/Resolved]
  - Anterior chamber crystallisation [Recovered/Resolved]
  - Iris adhesions [Recovered/Resolved]
  - Conjunctival hyperaemia [Recovered/Resolved]
  - Endophthalmitis [Recovered/Resolved]
  - Neutrophil count increased [Recovered/Resolved]
